FAERS Safety Report 9227803 (Version 2)
Quarter: 2013Q2

REPORT INFORMATION
  Report Type: Spontaneous
  Country: DE (occurrence: DE)
  Receive Date: 20130412
  Receipt Date: 20130412
  Transmission Date: 20140414
  Serious: Yes (Other)
  Sender: FDA-Public Use
  Company Number: DE-PFIZER INC-2013070001

PATIENT
  Age: 42 Year
  Sex: Male
  Weight: 113 kg

DRUGS (2)
  1. LYRICA [Suspect]
     Indication: ANXIETY
     Dosage: 300 MG, 3X/DAY
     Route: 048
     Dates: start: 2011
  2. LYRICA [Suspect]
     Indication: PERSONALITY DISORDER

REACTIONS (4)
  - Drug abuse [Unknown]
  - Withdrawal syndrome [Unknown]
  - Sexual activity increased [Unknown]
  - Therapeutic response unexpected [Unknown]
